FAERS Safety Report 24936189 (Version 1)
Quarter: 2025Q1

REPORT INFORMATION
  Report Type: Report from Study
  Country: US (occurrence: US)
  Receive Date: 20250206
  Receipt Date: 20250206
  Transmission Date: 20250409
  Serious: Yes (Other)
  Sender: EXELIXIS
  Company Number: US-EXELIXIS-EXL-2024-001802

PATIENT
  Age: 60 Year
  Sex: Male

DRUGS (10)
  1. CABOMETYX [Suspect]
     Active Substance: CABOZANTINIB S-MALATE
     Indication: Renal cell carcinoma
     Dosage: 60 MG, QD
     Dates: start: 20241012
  2. CABOMETYX [Suspect]
     Active Substance: CABOZANTINIB S-MALATE
     Dosage: 40 MG, QD
  3. ASPIRIN [Concomitant]
     Active Substance: ASPIRIN
  4. CLOPIDOGREL [Concomitant]
     Active Substance: CLOPIDOGREL BISULFATE
  5. FUROSEMIDE [Concomitant]
     Active Substance: FUROSEMIDE
  6. LOSARTAN [Concomitant]
     Active Substance: LOSARTAN
  7. TRELEGY ELLIPTA [Concomitant]
     Active Substance: FLUTICASONE FUROATE\UMECLIDINIUM BROMIDE\VILANTEROL TRIFENATATE
  8. METOPROLOL SUCCINATE [Concomitant]
     Active Substance: METOPROLOL SUCCINATE
  9. ATORVASTATIN [Concomitant]
     Active Substance: ATORVASTATIN
  10. FERROUS SULFATE [Concomitant]
     Active Substance: FERROUS SULFATE

REACTIONS (14)
  - Diarrhoea haemorrhagic [Unknown]
  - Abdominal pain [Unknown]
  - Malaise [Unknown]
  - Dysphonia [Unknown]
  - Fatigue [Unknown]
  - Decreased appetite [Unknown]
  - Blood pressure increased [Unknown]
  - Asthenia [Unknown]
  - Ageusia [Unknown]
  - Faeces soft [Unknown]
  - Throat irritation [Unknown]
  - Arthralgia [Unknown]
  - Dry mouth [Unknown]
  - Back pain [Unknown]

NARRATIVE: CASE EVENT DATE: 20241031
